FAERS Safety Report 21506554 (Version 2)
Quarter: 2024Q1

REPORT INFORMATION
  Report Type: Spontaneous
  Country: IT (occurrence: IT)
  Receive Date: 20221026
  Receipt Date: 20240130
  Transmission Date: 20240410
  Serious: Yes (Hospitalization, Other)
  Sender: FDA-Public Use
  Company Number: None

PATIENT
  Age: 26 Year
  Sex: Female

DRUGS (4)
  1. ALPRAZOLAM [Suspect]
     Active Substance: ALPRAZOLAM
     Indication: Intentional overdose
     Dosage: 2 DF (REFERRED VOLUNTARY INTAKE OF 2 PACKS OF XANAX TOTAL QUANTITY NOT FURTHER SPECIFIED)
     Route: 048
     Dates: start: 20220925, end: 20220925
  2. ZOLPIDEM TARTRATE [Suspect]
     Active Substance: ZOLPIDEM TARTRATE
     Indication: Intentional overdose
     Dosage: 3 DF (REFERRED VOLUNTARY INTAKE OF 3 PACKS OF STILNOX TOTAL QUANTITY NOT FURTHER SPECIFIED)
     Route: 048
     Dates: start: 20220925, end: 20220925
  3. QUETIAPINE FUMARATE [Suspect]
     Active Substance: QUETIAPINE FUMARATE
     Indication: Intentional overdose
     Dosage: 2 DF (REPORTED VOLUNTARY INTAKE OF 2 PACKS OF QUETIAPINE, TOTAL QUANTITY NOT FURTHER SPECIFIED)
     Route: 048
     Dates: start: 20220925, end: 20220925
  4. FLURAZEPAM HYDROCHLORIDE [Suspect]
     Active Substance: FLURAZEPAM HYDROCHLORIDE
     Indication: Intentional overdose
     Dosage: 2 DF
     Route: 048
     Dates: start: 20220925, end: 20220925

REACTIONS (5)
  - Skin abrasion [Not Recovered/Not Resolved]
  - Suicide attempt [Recovering/Resolving]
  - Sopor [Not Recovered/Not Resolved]
  - Somnolence [Not Recovered/Not Resolved]
  - Intentional overdose [Unknown]

NARRATIVE: CASE EVENT DATE: 20220925
